FAERS Safety Report 4557968-2 (Version None)
Quarter: 2005Q1

REPORT INFORMATION
  Report Type: 
  Country: None (occurrence: None)
  Receive Date: 20050121
  Receipt Date: 20040322
  Transmission Date: 20050727
  Serious: No
  Sender: FDA-Public Use
  Company Number: US-BRISTOL-MYERS SQUIBB COMPANY-12540738

PATIENT
  Age: 51 Year
  Sex: Male

DRUGS (1)
  1. SERZONE [Suspect]
     Indication: DEPRESSION
     Dates: start: 19990116, end: 20010401

REACTIONS (2)
  - ALPHA 1 FOETOPROTEIN INCREASED [None]
  - HEPATIC STEATOSIS [None]
